FAERS Safety Report 7813225-X (Version None)
Quarter: 2011Q4

REPORT INFORMATION
  Report Type: 
  Country: None (occurrence: None)
  Receive Date: 20111013
  Receipt Date: 20111005
  Transmission Date: 20120403
  Serious: Yes (Death)
  Sender: FDA-Public Use
  Company Number: IT-MPIJNJ-2011-04215

PATIENT

DRUGS (2)
  1. DEXAMETHASONE [Suspect]
     Indication: AMYLOIDOSIS
  2. VELCADE [Suspect]
     Indication: AMYLOIDOSIS
     Dosage: 2.1 MG, CYCLIC
     Route: 042
     Dates: start: 20081130, end: 20081210

REACTIONS (1)
  - AMYLOIDOSIS [None]
